FAERS Safety Report 9683358 (Version 1)
Quarter: 2013Q4

REPORT INFORMATION
  Report Type: Spontaneous
  Country: GB (occurrence: GB)
  Receive Date: 20131112
  Receipt Date: 20131112
  Transmission Date: 20140711
  Serious: Yes (Hospitalization, Other)
  Sender: FDA-Public Use
  Company Number: GB-BAYER-2013-134338

PATIENT
  Age: 87 Year
  Sex: Male

DRUGS (11)
  1. CIPROFLOXACIN [Suspect]
     Indication: URINARY TRACT INFECTION
     Dosage: 5 ML, BID
     Route: 048
     Dates: start: 201309, end: 20130905
  2. CALCICHEW D3 [Interacting]
     Dosage: UNK
     Route: 048
  3. ASPIRIN [Concomitant]
     Dosage: 75 MG, QD
  4. ATORVASTATIN [Concomitant]
  5. BIMATOPROST [Concomitant]
  6. BISOPROLOL [Concomitant]
  7. LAXIDO [Concomitant]
  8. MADOPAR [Concomitant]
  9. PARACETAMOL [Concomitant]
  10. SENNA [Concomitant]
  11. SODIUM VALPROATE [Concomitant]

REACTIONS (6)
  - Depressed level of consciousness [None]
  - Vomiting [None]
  - Sepsis [None]
  - Drug interaction [None]
  - Inappropriate schedule of drug administration [None]
  - Treatment failure [None]
